FAERS Safety Report 11779536 (Version 1)
Quarter: 2015Q4

REPORT INFORMATION
  Report Type: Spontaneous
  Country: US (occurrence: US)
  Receive Date: 20151125
  Receipt Date: 20151125
  Transmission Date: 20160304
  Serious: Yes (Other)
  Sender: FDA-Public Use
  Company Number: US-ASTRAZENECA-2015SF12944

PATIENT
  Age: 52 Year
  Sex: Male
  Weight: 72.6 kg

DRUGS (19)
  1. METOPROLOL SUCCINATE. [Suspect]
     Active Substance: METOPROLOL SUCCINATE
     Indication: MYOCARDIAL INFARCTION
     Dosage: ONE TABLET IN THE MORNING AND A HALF TABLET AT NIGHT
     Route: 048
     Dates: start: 2000
  2. WARFARIN [Concomitant]
     Active Substance: WARFARIN
     Indication: FACTOR V DEFICIENCY
     Dosage: DAILY
     Route: 065
  3. LOSARTAN. [Concomitant]
     Active Substance: LOSARTAN
     Indication: MYOCARDIAL INFARCTION
     Route: 065
  4. NEXIUM [Suspect]
     Active Substance: ESOMEPRAZOLE MAGNESIUM
     Indication: GASTROOESOPHAGEAL REFLUX DISEASE
     Route: 048
     Dates: start: 2003
  5. LOSARTAN. [Concomitant]
     Active Substance: LOSARTAN
     Indication: CARDIAC DISORDER
     Route: 065
  6. PRAVASTATIN [Concomitant]
     Active Substance: PRAVASTATIN\PRAVASTATIN SODIUM
     Indication: BLOOD CHOLESTEROL ABNORMAL
     Route: 065
     Dates: start: 2000
  7. COUMADIN [Concomitant]
     Active Substance: WARFARIN SODIUM
     Indication: FACTOR V DEFICIENCY
     Route: 065
  8. LOSARTAN. [Concomitant]
     Active Substance: LOSARTAN
     Indication: CARDIAC DISORDER
     Route: 065
  9. NEXIUM [Suspect]
     Active Substance: ESOMEPRAZOLE MAGNESIUM
     Indication: PRODUCT USED FOR UNKNOWN INDICATION
     Route: 048
     Dates: start: 2003
  10. METOPROLOL SUCCINATE. [Suspect]
     Active Substance: METOPROLOL SUCCINATE
     Indication: MYOCARDIAL INFARCTION
     Dosage: 100 MG ORAL IN AM AND 50 MG ORAL, BLUEPOINT
     Route: 048
     Dates: start: 2000
  11. LORAZEPAM. [Concomitant]
     Active Substance: LORAZEPAM
     Indication: ANXIETY
     Route: 065
  12. NEXIUM [Suspect]
     Active Substance: ESOMEPRAZOLE MAGNESIUM
     Indication: GASTROOESOPHAGEAL REFLUX DISEASE
     Route: 048
     Dates: start: 20151114
  13. NEXIUM [Suspect]
     Active Substance: ESOMEPRAZOLE MAGNESIUM
     Indication: GASTROOESOPHAGEAL REFLUX DISEASE
     Route: 048
     Dates: end: 20151115
  14. NEXIUM [Suspect]
     Active Substance: ESOMEPRAZOLE MAGNESIUM
     Indication: OESOPHAGEAL CARCINOMA
     Route: 048
     Dates: start: 2003
  15. NEXIUM [Suspect]
     Active Substance: ESOMEPRAZOLE MAGNESIUM
     Indication: GASTROOESOPHAGEAL REFLUX DISEASE
     Route: 048
     Dates: start: 2003
  16. METOPROLOL SUCCINATE. [Suspect]
     Active Substance: METOPROLOL SUCCINATE
     Indication: CARDIAC DISORDER
     Dosage: 100 MG ORAL IN AM AND 50 MG ORAL, BLUEPOINT
     Route: 048
     Dates: start: 2000
  17. WARFARIN [Concomitant]
     Active Substance: WARFARIN
     Indication: ANTICOAGULANT THERAPY
     Dosage: DAILY
     Route: 065
  18. METOPROLOL SUCCINATE. [Suspect]
     Active Substance: METOPROLOL SUCCINATE
     Indication: CARDIAC DISORDER
     Dosage: ONE TABLET IN THE MORNING AND A HALF TABLET AT NIGHT
     Route: 048
     Dates: start: 2000
  19. LORAZEPAM. [Concomitant]
     Active Substance: LORAZEPAM
     Indication: MUSCLE SPASMS
     Route: 065

REACTIONS (13)
  - Product use issue [Unknown]
  - Intracardiac thrombus [Unknown]
  - Dysphonia [Unknown]
  - Off label use [Unknown]
  - Intentional product misuse [Unknown]
  - Embolism [Unknown]
  - Drug dose omission [Unknown]
  - Malaise [Unknown]
  - Oesophageal carcinoma [Unknown]
  - Chest pain [Unknown]
  - Gastrooesophageal reflux disease [Unknown]
  - Vomiting [Unknown]
  - Anxiety [Unknown]

NARRATIVE: CASE EVENT DATE: 2003
